FAERS Safety Report 9560988 (Version 1)
Quarter: 2013Q3

REPORT INFORMATION
  Report Type: Spontaneous
  Country: US (occurrence: US)
  Receive Date: 20130927
  Receipt Date: 20130927
  Transmission Date: 20140515
  Serious: No
  Sender: FDA-Public Use
  Company Number: US-BIOGENIDEC-2013BI055960

PATIENT
  Age: 54 Year
  Sex: Female

DRUGS (1)
  1. TECFIDERA [Suspect]
     Indication: MULTIPLE SCLEROSIS
     Route: 048
     Dates: start: 20130426

REACTIONS (6)
  - Pyrexia [Unknown]
  - Flushing [Unknown]
  - Nausea [Unknown]
  - Abdominal pain [Unknown]
  - Pruritus [Unknown]
  - Erythema [Unknown]
